FAERS Safety Report 9353057 (Version 1)
Quarter: 2013Q2

REPORT INFORMATION
  Report Type: Spontaneous
  Country: US (occurrence: None)
  Receive Date: 20130617
  Receipt Date: 20130617
  Transmission Date: 20140414
  Serious: No
  Sender: FDA-Public Use
  Company Number: None

PATIENT
  Age: 45 Year
  Sex: Female
  Weight: 89.36 kg

DRUGS (3)
  1. RIZATRIPTAN 10MG UNK [Suspect]
     Indication: MIGRAINE
     Dosage: 10MG?AD. PRN?PO
     Route: 048
     Dates: start: 201303
  2. ASA 81MG [Concomitant]
  3. OMEGA 3 [Concomitant]

REACTIONS (3)
  - Nausea [None]
  - Drug ineffective [None]
  - Product substitution issue [None]
